FAERS Safety Report 6934905-4 (Version None)
Quarter: 2010Q3

REPORT INFORMATION
  Report Type: 
  Country: None (occurrence: None)
  Receive Date: 20100821
  Receipt Date: 20100807
  Transmission Date: 20110219
  Serious: Yes (Other)
  Sender: FDA-Public Use
  Company Number: PHHY2010BR52558

PATIENT
  Sex: Female

DRUGS (3)
  1. DIOVAN [Suspect]
     Dosage: 320 MG,UNK
  2. ATENOLOL [Suspect]
     Dosage: 100 MG, UNK
  3. CAPTOPRIL [Suspect]

REACTIONS (2)
  - CATARACT OPERATION [None]
  - HYPERTENSION [None]
